FAERS Safety Report 6032234-7 (Version None)
Quarter: 2009Q1

REPORT INFORMATION
  Report Type: 
  Country: None (occurrence: None)
  Receive Date: 20090108
  Receipt Date: 20081231
  Transmission Date: 20090719
  Serious: Yes (Hospitalization)
  Sender: FDA-Public Use
  Company Number: US-GENENTECH-274819

PATIENT
  Sex: Male

DRUGS (7)
  1. AVASTIN [Suspect]
     Indication: COLORECTAL CANCER METASTATIC
     Dosage: UNK
  2. FOLINIC ACID [Concomitant]
     Indication: COLON CANCER METASTATIC
  3. FLUOROURACIL [Concomitant]
     Indication: COLON CANCER METASTATIC
  4. OXALIPLATIN [Concomitant]
     Indication: COLON CANCER METASTATIC
  5. BENADRYL [Concomitant]
     Indication: PREMEDICATION
  6. TAGAMET [Concomitant]
     Indication: PREMEDICATION
  7. STEROID (NAME UNKNOWN) [Concomitant]
     Indication: PREMEDICATION

REACTIONS (3)
  - BACK PAIN [None]
  - FLUSHING [None]
  - UNEVALUABLE EVENT [None]
